FAERS Safety Report 6492032-7 (Version None)
Quarter: 2009Q4

REPORT INFORMATION
  Report Type: 
  Country: None (occurrence: None)
  Receive Date: 20091208
  Receipt Date: 20091123
  Transmission Date: 20100525
  Serious: Yes (Other)
  Sender: FDA-Public Use
  Company Number: 2009000520

PATIENT
  Age: 68 Year
  Sex: Male
  Weight: 44.5 kg

DRUGS (11)
  1. ERLOTINIB HYDROCHLORIDE [Suspect]
     Indication: LUNG SQUAMOUS CELL CARCINOMA STAGE UNSPECIFIED
     Dosage: (150 MG,QD),ORAL
     Route: 048
     Dates: start: 20081205, end: 20090228
  2. LOPRESSOR [Concomitant]
  3. FAMOTIDINE [Concomitant]
  4. MUCODYNE (CARBOCISTEINE) [Concomitant]
  5. MUCOSOLVAN (AMBROXOL HYDROCHLORIDE) [Concomitant]
  6. MAGMITT (MAGNESIUM OXIDE) [Concomitant]
  7. BFLUID [Concomitant]
  8. TAZOCIN (PIP/TAZO) [Concomitant]
  9. BIAPENEM [Concomitant]
  10. MINOCYCLINE HCL [Concomitant]
  11. BETAMETHASONE [Concomitant]

REACTIONS (3)
  - DERMATITIS ACNEIFORM [None]
  - LUNG SQUAMOUS CELL CARCINOMA STAGE UNSPECIFIED [None]
  - MALIGNANT NEOPLASM PROGRESSION [None]
